FAERS Safety Report 4421364-9 (Version None)
Quarter: 2004Q3

REPORT INFORMATION
  Report Type: 
  Country: None (occurrence: None)
  Receive Date: 20040707
  Receipt Date: 20040603
  Transmission Date: 20050211
  Serious: Yes (Hospitalization)
  Sender: FDA-Public Use
  Company Number: 353765

PATIENT
  Age: 52 Year
  Sex: Male
  Weight: 86.2 kg

DRUGS (4)
  1. FUZEON [Suspect]
     Indication: HIV INFECTION
     Dosage: 90 MG 2 PER DAY SUBCUTANEOUS
     Route: 058
     Dates: start: 20030724
  2. ATAZANAVIR (ATAZANAVIR) [Concomitant]
  3. COMBIVIR [Concomitant]
  4. VIREAD [Concomitant]

REACTIONS (9)
  - ANAEMIA [None]
  - ASTHENIA [None]
  - DISTURBANCE IN ATTENTION [None]
  - DRUG INEFFECTIVE [None]
  - DYSPNOEA [None]
  - FATIGUE [None]
  - INJECTION SITE REACTION [None]
  - MYALGIA [None]
  - SKIN DISORDER [None]
